FAERS Safety Report 8534303-6 (Version None)
Quarter: 2012Q3

REPORT INFORMATION
  Report Type: 
  Country: None (occurrence: None)
  Receive Date: 20120724
  Receipt Date: 20120717
  Transmission Date: 20120928
  Serious: Yes (Hospitalization)
  Sender: FDA-Public Use
  Company Number: US-VERTEX PHARMACEUTICALS INC.-AE-2012-009646

PATIENT
  Sex: Female
  Weight: 126.55 kg

DRUGS (3)
  1. RIBAVIRIN [Concomitant]
     Indication: HEPATITIS C
     Route: 048
     Dates: start: 20120509
  2. INCIVEK [Suspect]
     Indication: HEPATITIS C
     Route: 048
     Dates: start: 20120509
  3. PEGASYS [Concomitant]
     Indication: HEPATITIS C
     Route: 058
     Dates: start: 20120509

REACTIONS (9)
  - CHOLECYSTITIS INFECTIVE [None]
  - ADRENALITIS [None]
  - PAIN [None]
  - CHOLELITHIASIS [None]
  - CHILLS [None]
  - FALL [None]
  - PYREXIA [None]
  - FATIGUE [None]
  - HYPOAESTHESIA [None]
